FAERS Safety Report 7002842-5 (Version None)
Quarter: 2010Q3

REPORT INFORMATION
  Report Type: 
  Country: None (occurrence: None)
  Receive Date: 20100920
  Receipt Date: 20071127
  Transmission Date: 20110219
  Serious: Yes (Other)
  Sender: FDA-Public Use
  Company Number: US-ASTRAZENECA-2006UW22858

PATIENT
  Age: 541 Month
  Sex: Male
  Weight: 104.8 kg

DRUGS (5)
  1. SEROQUEL [Suspect]
     Indication: INSOMNIA
     Route: 048
     Dates: start: 20030818
  2. SEROQUEL [Suspect]
     Route: 048
     Dates: start: 20040101, end: 20060101
  3. TRAZODONE HCL [Concomitant]
     Route: 048
     Dates: start: 19970211
  4. PAXIL [Concomitant]
     Dosage: 20-30 MG
     Route: 048
     Dates: start: 19970211
  5. ALBUTEROL SULATE [Concomitant]
     Dosage: 2-8 PUFFS
     Route: 055
     Dates: start: 20030809

REACTIONS (1)
  - PANCREATITIS [None]
